FAERS Safety Report 14969320 (Version 1)
Quarter: 2018Q2

REPORT INFORMATION
  Report Type: Spontaneous
  Country: US (occurrence: US)
  Receive Date: 20180511
  Receipt Date: 20180511
  Transmission Date: 20180711
  Serious: No
  Sender: FDA-Public Use
  Company Number: None

PATIENT
  Age: 68 Year
  Sex: Female
  Weight: 72 kg

DRUGS (10)
  1. D.C. 0168-0004-80 FOUGERA TRIAMCINOLONE ACETONIDE CREAM USP 0.1% [Suspect]
     Active Substance: TRIAMCINOLONE ACETONIDE
     Indication: ERYTHEMA
     Route: 061
  2. POTASSIUM [Concomitant]
     Active Substance: POTASSIUM
  3. SELENIUM [Concomitant]
     Active Substance: SELENIUM
  4. MAGNESIUM [Concomitant]
     Active Substance: MAGNESIUM
  5. WESTTHROID THYROID [Concomitant]
  6. HYDROCHLOROTHIAZIDE. [Concomitant]
     Active Substance: HYDROCHLOROTHIAZIDE
  7. VITAMIN B [Concomitant]
     Active Substance: VITAMIN B
  8. VITAMIN C [Concomitant]
     Active Substance: ASCORBIC ACID
  9. T3 [Concomitant]
     Active Substance: LIOTHYRONINE SODIUM
  10. VITAMIN D [Concomitant]
     Active Substance: CHOLECALCIFEROL

REACTIONS (3)
  - Erythema [None]
  - Madarosis [None]
  - Hypoaesthesia [None]

NARRATIVE: CASE EVENT DATE: 20180403
